FAERS Safety Report 24307732 (Version 3)
Quarter: 2024Q4

REPORT INFORMATION
  Report Type: Spontaneous
  Country: US (occurrence: US)
  Receive Date: 20240911
  Receipt Date: 20241113
  Transmission Date: 20250115
  Serious: No
  Sender: PFIZER
  Company Number: US-PFIZER INC-202400250469

PATIENT
  Age: 30 Year
  Sex: Male
  Weight: 86.18 kg

DRUGS (2)
  1. GENOTROPIN [Suspect]
     Active Substance: SOMATROPIN
     Indication: Growth hormone deficiency
     Dosage: 0.7 MG, DAILY (ALTERNATE BETWEEN THIGHS AND LOWER STOMACH)
     Dates: start: 201011
  2. GENOTROPIN [Suspect]
     Active Substance: SOMATROPIN
     Indication: Thyroid disorder

REACTIONS (2)
  - Drug dose omission by device [Unknown]
  - Device information output issue [Unknown]

NARRATIVE: CASE EVENT DATE: 20240903
